FAERS Safety Report 20059324 (Version 2)
Quarter: 2021Q4

REPORT INFORMATION
  Report Type: Report from Study
  Country: FR (occurrence: US)
  Receive Date: 20211111
  Receipt Date: 20211111
  Transmission Date: 20220303
  Serious: Yes (Disabling)
  Sender: FDA-Public Use
  Company Number: FR-SERVIER-S21012205

PATIENT

DRUGS (8)
  1. PEGASPARGASE [Suspect]
     Active Substance: PEGASPARGASE
     Indication: B precursor type acute leukaemia
     Dosage: 2000 IU/M?, ON INDUCTION DAY 4, CONSOLIDATION DAYS 1 AND 43, INTERIM MAINTENANCE DAYS 2 AND 22, AND
     Route: 042
     Dates: start: 20190730
  2. DEXAMETHASONE [Suspect]
     Active Substance: DEXAMETHASONE
     Indication: B precursor type acute leukaemia
     Dosage: 5 MG/M2, DAILY FOR 5 DAYS EVERY 4 WEEKS: DAYS 1-5, 29-33, 57-61 OF EACH CYCLE
     Route: 048
     Dates: start: 20190727
  3. PREDNISONE [Suspect]
     Active Substance: PREDNISONE
     Indication: B precursor type acute leukaemia
     Dosage: UNK
     Route: 065
     Dates: end: 20210807
  4. TN UNSPECIFIED [Concomitant]
     Indication: B precursor type acute leukaemia
     Dosage: UNK
     Route: 065
     Dates: start: 20190727
  5. TN UNSPECIFIED [Concomitant]
     Indication: B precursor type acute leukaemia
     Dosage: 60 MG/M2, QD
     Route: 048
     Dates: end: 20210831
  6. TN UNSPECIFIED [Concomitant]
     Indication: B precursor type acute leukaemia
     Dosage: 15 MG, OTHER
     Route: 037
     Dates: end: 20210824
  7. TN UNSPECIFIED [Concomitant]
     Dosage: 20 MG/M2, 1X/WEEK
     Route: 048
  8. TN UNSPECIFIED [Concomitant]
     Indication: B precursor type acute leukaemia
     Dosage: 1.5 MG/M2, OTHER
     Route: 042
     Dates: start: 201907, end: 20210803

REACTIONS (1)
  - Osteonecrosis [Not Recovered/Not Resolved]

NARRATIVE: CASE EVENT DATE: 20211011
